FAERS Safety Report 19459734 (Version 2)
Quarter: 2022Q1

REPORT INFORMATION
  Report Type: Spontaneous
  Country: US (occurrence: US)
  Receive Date: 20210624
  Receipt Date: 20220104
  Transmission Date: 20220423
  Serious: Yes (Hospitalization)
  Sender: FDA-Public Use
  Company Number: US-PFIZER INC-2021415140

PATIENT
  Sex: Female
  Weight: 8.9 kg

DRUGS (56)
  1. IRINOTECAN HYDROCHLORIDE [Suspect]
     Active Substance: IRINOTECAN HYDROCHLORIDE
     Dosage: UNK(UNK, CYCLICAL (CYCLE 1), UNKNOWN)
     Dates: start: 20181126
  2. IRINOTECAN HYDROCHLORIDE [Suspect]
     Active Substance: IRINOTECAN HYDROCHLORIDE
     Dosage: UNK, CYCLIC,CYCLICAL (CYCLE 2),
     Dates: start: 20181217
  3. UNITUXIN [Suspect]
     Active Substance: DINUTUXIMAB
     Indication: Neuroblastoma
     Dosage: UNK, CYCLIC
     Route: 041
     Dates: start: 20181126
  4. UNITUXIN [Suspect]
     Active Substance: DINUTUXIMAB
     Dosage: UNK, CYCLIC,(CYCLE 2)
     Route: 041
     Dates: start: 20181217
  5. UNITUXIN [Suspect]
     Active Substance: DINUTUXIMAB
     Dosage: UNK, CYCLIC,CYCLICAL (CYCLE 1)
     Route: 041
     Dates: start: 20190527
  6. UNITUXIN [Suspect]
     Active Substance: DINUTUXIMAB
     Dosage: CYCLICAL (CYCLE 2) AFTER HOME INFUSION IL2
     Route: 041
     Dates: start: 20190702
  7. UNITUXIN [Suspect]
     Active Substance: DINUTUXIMAB
     Dosage: UNK, CYCLICAL (CYCLE 3) (AT 50% DOSE)
     Route: 041
     Dates: start: 20190812
  8. UNITUXIN [Suspect]
     Active Substance: DINUTUXIMAB
     Dosage: (CYCLE 4) (AT 75% DOSE),
     Route: 041
     Dates: start: 201909
  9. UNITUXIN [Suspect]
     Active Substance: DINUTUXIMAB
     Dosage: CYCLICAL (CYCLE 5) (AT 100% DOSE)
     Route: 041
     Dates: start: 201910
  10. UNITUXIN [Suspect]
     Active Substance: DINUTUXIMAB
     Dosage: 0.5 MG, CYCLIC,CYCLICAL (CYCLE 1)
     Route: 041
     Dates: start: 20200901, end: 20200904
  11. UNITUXIN [Suspect]
     Active Substance: DINUTUXIMAB
     Dosage: 0.5 MG, CYCLIC,CYCLICAL (CYCLE 2),
     Route: 041
     Dates: start: 20200928, end: 20201002
  12. UNITUXIN [Suspect]
     Active Substance: DINUTUXIMAB
     Dosage: 0.75 MG, CYCLIC,CYCLICAL (CYCLE 3), OTHER
     Route: 041
     Dates: start: 20201019, end: 20201023
  13. UNITUXIN [Suspect]
     Active Substance: DINUTUXIMAB
     Dosage: 1 MG, CYCLIC,CYCLICAL (CYCLE 4),
     Route: 041
     Dates: start: 20201109, end: 20201113
  14. UNITUXIN [Suspect]
     Active Substance: DINUTUXIMAB
     Dosage: 1 MG, CYCLIC,CYCLICAL (CYCLE 5),
     Dates: start: 20201130, end: 20201204
  15. UNITUXIN [Suspect]
     Active Substance: DINUTUXIMAB
     Dosage: 1 MG, CYCLIC,CYCLICAL (CYCLE 6),
     Dates: start: 20201221, end: 20201224
  16. UNITUXIN [Suspect]
     Active Substance: DINUTUXIMAB
     Dosage: 1.5 MG, CYCLIC,CYCLICAL (CYCLE 7),
     Dates: start: 20210111, end: 20210116
  17. UNITUXIN [Suspect]
     Active Substance: DINUTUXIMAB
     Dosage: 2.5 MG, CYCLIC,CYCLICAL (CYCLE 8),
     Dates: start: 20210201, end: 20210205
  18. UNITUXIN [Suspect]
     Active Substance: DINUTUXIMAB
     Dosage: 3.5 MG, CYCLIC,CYCLICAL (CYCLE 9),
     Dates: start: 20210222, end: 20210226
  19. UNITUXIN [Suspect]
     Active Substance: DINUTUXIMAB
     Dosage: 5 MG, CYCLIC,CYCLICAL (CYCLE 10)
     Dates: start: 20210315, end: 20210319
  20. ETOPOSIDE [Suspect]
     Active Substance: ETOPOSIDE
     Indication: Neuroblastoma
     Dosage: 0.5 MG, CYCLIC (CYCLE 2)
     Route: 050
     Dates: start: 20200928, end: 20201002
  21. ETOPOSIDE [Suspect]
     Active Substance: ETOPOSIDE
     Dosage: 0.5 MG, CYCLIC ((CYCLE 3)
     Route: 050
     Dates: start: 20201019, end: 20201023
  22. ETOPOSIDE [Suspect]
     Active Substance: ETOPOSIDE
     Dosage: 0.5 MG, CYCLIC (CYCLE 4)
     Route: 050
     Dates: start: 20201109, end: 20201113
  23. ETOPOSIDE [Suspect]
     Active Substance: ETOPOSIDE
     Dosage: 0.5 MG, CYCLIC (CYCLE 5)
     Dates: start: 20201130, end: 20201204
  24. ETOPOSIDE [Suspect]
     Active Substance: ETOPOSIDE
     Dosage: 0.5 MG, CYCLIC (CYCLE 6)
     Route: 050
     Dates: start: 20201221, end: 20201224
  25. ETOPOSIDE [Suspect]
     Active Substance: ETOPOSIDE
     Dosage: 0.5 MG, CYCLIC (CYCLE 7)
     Route: 050
     Dates: start: 20210111, end: 20210116
  26. ETOPOSIDE [Suspect]
     Active Substance: ETOPOSIDE
     Dosage: 0.5 MG, CYCLIC (CYCLE 8)
     Route: 050
     Dates: start: 20210201, end: 20210205
  27. ETOPOSIDE [Suspect]
     Active Substance: ETOPOSIDE
     Dosage: 0.5 MG, CYCLIC (CYCLE 9)
     Route: 050
     Dates: start: 20210222, end: 20210226
  28. ETOPOSIDE [Suspect]
     Active Substance: ETOPOSIDE
     Dosage: 0.5 MG, CYCLIC (CYCLE 10)
     Route: 050
     Dates: start: 20210315, end: 20210319
  29. ETOPOSIDE [Suspect]
     Active Substance: ETOPOSIDE
     Dosage: 0.5 MG, CYCLIC (CYCLE 2)
     Route: 050
     Dates: start: 20181217
  30. ETOPOSIDE [Suspect]
     Active Substance: ETOPOSIDE
     Dosage: 0.5 MG, CYCLIC (CYCLE 2)
     Route: 048
     Dates: start: 20200928, end: 20201002
  31. ETOPOSIDE [Suspect]
     Active Substance: ETOPOSIDE
     Dosage: 0.5 MG, CYCLIC (CYCLE 3)
     Route: 048
     Dates: start: 20201019, end: 20201023
  32. ETOPOSIDE [Suspect]
     Active Substance: ETOPOSIDE
     Dosage: 0.5 MG, CYCLIC (CYCLE 4)
     Route: 048
     Dates: start: 20201109, end: 20201113
  33. ETOPOSIDE [Suspect]
     Active Substance: ETOPOSIDE
     Dosage: 0.5 MG, CYCLIC (CYCLE 5)
     Route: 048
     Dates: start: 20201130, end: 20201204
  34. ETOPOSIDE [Suspect]
     Active Substance: ETOPOSIDE
     Indication: Neuroblastoma
     Dosage: UNK
     Route: 037
  35. TEMODAR [Suspect]
     Active Substance: TEMOZOLOMIDE
     Indication: Neuroblastoma
     Dosage: UNK, CYCLIC, CONTINUING (CYCLE 1)
     Dates: start: 20181126
  36. TEMODAR [Suspect]
     Active Substance: TEMOZOLOMIDE
     Dosage: 50 MG, CYCLIC, CYCLICAL (CYCLE 10),
     Route: 048
     Dates: start: 20210315, end: 20210319
  37. TEMODAR [Suspect]
     Active Substance: TEMOZOLOMIDE
     Dosage: 50 MG, CYCLIC,CYCLICAL (CYCLE 9)
     Route: 048
     Dates: start: 20210222, end: 20210226
  38. TEMODAR [Suspect]
     Active Substance: TEMOZOLOMIDE
     Dosage: 45 MG, CYCLIC, (CYCLE 7))
     Route: 048
     Dates: start: 20210111, end: 20210116
  39. TEMODAR [Suspect]
     Active Substance: TEMOZOLOMIDE
     Dosage: 45 MG, CYCLIC, (CYCLE 6)
     Route: 048
     Dates: start: 20201221, end: 20201224
  40. TEMODAR [Suspect]
     Active Substance: TEMOZOLOMIDE
     Dosage: UNK,(CYCLE 2)
     Dates: start: 20181217
  41. TEMODAR [Suspect]
     Active Substance: TEMOZOLOMIDE
     Dosage: 35 MG, CYCLIC
     Route: 048
     Dates: start: 20200928, end: 20201002
  42. TEMODAR [Suspect]
     Active Substance: TEMOZOLOMIDE
     Dosage: 45 MG, CYCLIC, CYCLE 3
     Route: 048
     Dates: start: 20201019, end: 20201023
  43. TEMODAR [Suspect]
     Active Substance: TEMOZOLOMIDE
     Dosage: 45 MG, CYCLIC, (CYCLE 4))
     Route: 048
     Dates: start: 20201109, end: 20201113
  44. TEMODAR [Suspect]
     Active Substance: TEMOZOLOMIDE
     Dosage: 45 MG, CYCLIC,CYCLICAL (CYCLE 5),
     Route: 048
     Dates: start: 20201130, end: 20201204
  45. GRANULOCYTE-MACROPHAGE COLONY-STIMULATING FACTOR [Suspect]
     Active Substance: GRANULOCYTE-MACROPHAGE COLONY-STIMULATING FACTOR
     Indication: Neuroblastoma
     Dosage: UNK, CYCLIC,CYCLICAL (CYCLE 3),
     Dates: start: 20190812
  46. GRANULOCYTE-MACROPHAGE COLONY-STIMULATING FACTOR [Suspect]
     Active Substance: GRANULOCYTE-MACROPHAGE COLONY-STIMULATING FACTOR
     Dosage: UNK, CYCLIC, CYCLICAL (CYCLE 5),
     Dates: start: 201910
  47. GRANULOCYTE-MACROPHAGE COLONY-STIMULATING FACTOR [Suspect]
     Active Substance: GRANULOCYTE-MACROPHAGE COLONY-STIMULATING FACTOR
     Dosage: UNK, CYCLIC, CYCLICAL (CYCLE 4),
     Dates: start: 201909
  48. DISULFIRAM [Suspect]
     Active Substance: DISULFIRAM
     Dosage: 125 MG, 1X/DAY
     Route: 048
     Dates: start: 20210329
  49. DISULFIRAM [Suspect]
     Active Substance: DISULFIRAM
     Dosage: 250 MG, 1X/DAY
     Route: 048
     Dates: start: 20210322
  50. DISULFIRAM [Suspect]
     Active Substance: DISULFIRAM
     Dosage: 125 MG, 1X/DAY
     Route: 048
     Dates: start: 20210308
  51. CHOLECALCIFEROL [Concomitant]
     Active Substance: CHOLECALCIFEROL
     Dosage: UNK(ORAL LIQUID)
     Route: 048
  52. DEXAMETHASONE [Concomitant]
     Active Substance: DEXAMETHASONE
     Dosage: 1 MG/ML
  53. FAMOTIDINE [Concomitant]
     Active Substance: FAMOTIDINE
     Dosage: UNK(ORAL LIQUID)
     Route: 048
  54. ONDANSETRON [Concomitant]
     Active Substance: ONDANSETRON
     Dosage: UNK
  55. SULFAMETHOXAZOLE\TRIMETHOPRIM [Concomitant]
     Active Substance: SULFAMETHOXAZOLE\TRIMETHOPRIM
     Dosage: UNK
  56. TRAMETINIB [Concomitant]
     Active Substance: TRAMETINIB
     Dosage: UNK

REACTIONS (20)
  - Dysstasia [Unknown]
  - Hypokinesia [Unknown]
  - Headache [Unknown]
  - Malaise [Unknown]
  - Asthenia [Unknown]
  - Tachycardia [Unknown]
  - Vitamin D deficiency [Unknown]
  - Osteopenia [Unknown]
  - Blood thyroid stimulating hormone increased [Unknown]
  - Tri-iodothyronine decreased [Recovered/Resolved]
  - Thyroxine decreased [Recovered/Resolved]
  - Fatigue [Unknown]
  - Urine output decreased [Unknown]
  - Blood lactate dehydrogenase decreased [Unknown]
  - Serum ferritin increased [Unknown]
  - Blood urea nitrogen/creatinine ratio increased [Unknown]
  - Protein albumin ratio decreased [Unknown]
  - Conjunctivitis [Unknown]
  - Hordeolum [Recovering/Resolving]
  - Product use issue [Unknown]

NARRATIVE: CASE EVENT DATE: 20191101
